FAERS Safety Report 8672451 (Version 2)
Quarter: 2014Q3

REPORT INFORMATION
  Report Type: Spontaneous
  Country: US (occurrence: US)
  Receive Date: 20120719
  Receipt Date: 20140728
  Transmission Date: 20150326
  Serious: Yes (Hospitalization, Disabling)
  Sender: FDA-Public Use
  Company Number: US-RANBAXY-2012US-57806

PATIENT
  Age: 57 Year
  Sex: Male

DRUGS (5)
  1. SIMVASTATIN. [Suspect]
     Active Substance: SIMVASTATIN
     Indication: BLOOD CHOLESTEROL
     Dosage: 40MG, DAILY
     Route: 065
     Dates: start: 2010
  2. ZOCOR [Interacting]
     Active Substance: SIMVASTATIN
     Dosage: 80MG PER DAY
     Route: 065
     Dates: end: 201007
  3. SIMVASTATIN. [Suspect]
     Active Substance: SIMVASTATIN
     Dosage: 80MG, DAILY
     Route: 065
     Dates: end: 201007
  4. CYCLOSPORIN [Interacting]
     Active Substance: CYCLOSPORINE
     Indication: PROPHYLAXIS AGAINST TRANSPLANT REJECTION
     Dosage: UNKLNWON
     Route: 065
  5. ZOCOR [Interacting]
     Active Substance: SIMVASTATIN
     Indication: BLOOD CHOLESTEROL
     Dosage: 40MG PER DAY
     Route: 065
     Dates: start: 2010

REACTIONS (5)
  - Coronary artery occlusion [Unknown]
  - Renal failure [Unknown]
  - Rhabdomyolysis [Unknown]
  - Blood pressure fluctuation [Unknown]
  - Drug interaction [Unknown]

NARRATIVE: CASE EVENT DATE: 2010
